FAERS Safety Report 6652838-8 (Version None)
Quarter: 2010Q1

REPORT INFORMATION
  Report Type: 
  Country: None (occurrence: None)
  Receive Date: 20100325
  Receipt Date: 20100325
  Transmission Date: 20100710
  Serious: No
  Sender: FDA-Public Use
  Company Number: None

PATIENT
  Sex: Male

DRUGS (5)
  1. VARDENAFIL HYDROCHLORIDE (LEVITRA) [Suspect]
  2. METFORMIN HCL [Concomitant]
  3. LISINOPRIL [Concomitant]
  4. SIMVASTATIN [Concomitant]
  5. GLUCOTROL [Concomitant]

REACTIONS (3)
  - DYSPEPSIA [None]
  - NASAL CONGESTION [None]
  - VISION BLURRED [None]
